FAERS Safety Report 6659846-1 (Version None)
Quarter: 2010Q1

REPORT INFORMATION
  Report Type: 
  Country: None (occurrence: None)
  Receive Date: 20100330
  Receipt Date: 20100330
  Transmission Date: 20100710
  Serious: Yes (Death)
  Sender: FDA-Public Use
  Company Number: None

PATIENT
  Age: 69 Year
  Sex: Male

DRUGS (7)
  1. REVLIMID [Suspect]
     Indication: MULTIPLE MYELOMA
     Dosage: REVLIMID 25MG DAILY X21 DAYS ORAL
     Route: 048
     Dates: start: 20070905, end: 20080219
  2. REVLIMID [Suspect]
     Indication: MULTIPLE MYELOMA
     Dosage: REVLIMID 25MG DAILY X21 DAYS ORAL
     Route: 048
     Dates: start: 20090508, end: 20090527
  3. AMLODIPINE [Concomitant]
  4. LEVOTHROID [Concomitant]
  5. OMEPRAZOLE [Concomitant]
  6. CHOLINEMAG TRISALICYLATE [Concomitant]
  7. MULTI-VITAMIN [Concomitant]

REACTIONS (4)
  - CHILLS [None]
  - MYALGIA [None]
  - PLEURAL EFFUSION [None]
  - PNEUMONIA [None]
